FAERS Safety Report 22126652 (Version 1)
Quarter: 2023Q1

REPORT INFORMATION
  Report Type: Spontaneous
  Country: US (occurrence: None)
  Receive Date: 20230322
  Receipt Date: 20230322
  Transmission Date: 20230417
  Serious: No
  Sender: FDA-Public Use
  Company Number: None

PATIENT

DRUGS (2)
  1. BENZONATATE [Suspect]
     Active Substance: BENZONATATE
     Route: 048
  2. BENZTROPINE MESYLATE [Suspect]
     Active Substance: BENZTROPINE MESYLATE
     Route: 048

REACTIONS (3)
  - Product dispensing error [None]
  - Product name confusion [None]
  - Product name confusion [None]
